FAERS Safety Report 22092870 (Version 1)
Quarter: 2023Q1

REPORT INFORMATION
  Report Type: Other
  Country: None (occurrence: US)
  Receive Date: 20230314
  Receipt Date: 20230314
  Transmission Date: 20230418
  Serious: Yes (Other)
  Sender: FDA-Public Use
  Company Number: US-B.Braun Medical Inc.-2139026

PATIENT
  Age: 18 Year
  Sex: Female

DRUGS (5)
  1. HEPARIN SODIUM IN DEXTROSE [Suspect]
     Active Substance: HEPARIN SODIUM
     Indication: Anticoagulant therapy
  2. CYTARABINE [Concomitant]
     Active Substance: CYTARABINE
  3. DAUNORUBICIN [Concomitant]
     Active Substance: DAUNORUBICIN
  4. ETOPOSIDE [Concomitant]
     Active Substance: ETOPOSIDE
  5. SORAFENIB [Concomitant]
     Active Substance: SORAFENIB

REACTIONS (2)
  - Drug ineffective [Unknown]
  - Epistaxis [Unknown]
